FAERS Safety Report 19034815 (Version 1)
Quarter: 2021Q1

REPORT INFORMATION
  Report Type: Spontaneous
  Country: US (occurrence: US)
  Receive Date: 20210320
  Receipt Date: 20210320
  Transmission Date: 20210420
  Serious: No
  Sender: FDA-Public Use
  Company Number: US-MICRO LABS LIMITED-ML2020-03857

PATIENT
  Sex: Male
  Weight: 93.07 kg

DRUGS (3)
  1. LRBESARTAN [Suspect]
     Active Substance: IRBESARTAN
     Indication: HYPERTENSION
  2. AMLODIPINE [Suspect]
     Active Substance: AMLODIPINE BESYLATE
     Indication: HYPERTENSION
  3. DORZOLAMIDE/TIMOLOL [Suspect]
     Active Substance: DORZOLAMIDE\TIMOLOL
     Indication: GLAUCOMA
     Dosage: 22.3 MG /6.8 MG PER ML; ONCE IN EVENING AND ONCE IN THE MORNING IN BOTH EYES
     Route: 047
     Dates: start: 20201024, end: 202012

REACTIONS (2)
  - Dry skin [Not Recovered/Not Resolved]
  - Hypersensitivity [Not Recovered/Not Resolved]
